FAERS Safety Report 22816458 (Version 3)
Quarter: 2023Q4

REPORT INFORMATION
  Report Type: Spontaneous
  Country: US (occurrence: US)
  Receive Date: 20230811
  Receipt Date: 20231206
  Transmission Date: 20240110
  Serious: Yes (Other)
  Sender: FDA-Public Use
  Company Number: US-PFIZER INC-PV202300138586

PATIENT
  Age: 68 Year
  Sex: Female

DRUGS (1)
  1. IBRANCE [Suspect]
     Active Substance: PALBOCICLIB
     Dosage: (TAKE 125 MG BY MOUTH DAILY FOR 21 DAYS 07 DAYS BREAK)
     Route: 048

REACTIONS (3)
  - Second primary malignancy [Unknown]
  - Medullary thyroid cancer [Unknown]
  - Neoplasm progression [Unknown]
